FAERS Safety Report 8231290-5 (Version None)
Quarter: 2012Q1

REPORT INFORMATION
  Report Type: 
  Country: None (occurrence: None)
  Receive Date: 20120323
  Receipt Date: 20120322
  Transmission Date: 20120608
  Serious: Yes (Hospitalization)
  Sender: FDA-Public Use
  Company Number: US-PFIZER INC-2010022975

PATIENT
  Sex: Male
  Weight: 58.1 kg

DRUGS (15)
  1. AXITINIB [Suspect]
     Indication: METASTATIC RENAL CELL CARCINOMA
     Dosage: 5 MG, 2X/DAY
     Route: 048
     Dates: start: 20090915, end: 20100215
  2. NORVASC [Concomitant]
     Indication: HYPERTENSION
     Dosage: 10 MG, 1X/DAY
     Route: 048
     Dates: start: 20091110
  3. WARFARIN [Concomitant]
     Indication: THROMBOSIS PROPHYLAXIS
     Dosage: DAILY
     Dates: start: 20100207
  4. VITAMIN B6 [Concomitant]
     Indication: SUPPLEMENTATION THERAPY
     Dosage: DAILY
     Route: 048
     Dates: start: 20090801
  5. CALCIUM [Concomitant]
     Indication: SUPPLEMENTATION THERAPY
     Dosage: 500 MG, 1X/DAY
     Route: 048
     Dates: start: 20090801
  6. ATIVAN [Concomitant]
     Indication: NAUSEA
     Dosage: EVERY 6 HOURS AS NEEDED
     Route: 048
     Dates: start: 20100202
  7. URSODIOL [Concomitant]
     Indication: PROPHYLAXIS
     Dosage: 300 MG, 3X/DAY
     Route: 048
     Dates: start: 20090811
  8. BENADRYL [Concomitant]
     Indication: NAUSEA
     Dosage: EVERY 6 HOURS AS NEEDED
     Route: 048
     Dates: start: 20100202
  9. LORAZEPAM [Concomitant]
     Indication: ANXIETY
     Dosage: 0.5 MG, 1X/DAY
     Route: 048
     Dates: start: 20100125
  10. COLACE [Concomitant]
     Indication: CONSTIPATION PROPHYLAXIS
     Dosage: 100 MG, 1X/DAY
     Route: 048
     Dates: start: 20090811
  11. CREON [Concomitant]
     Indication: PANCREATIC ENZYME ABNORMALITY
     Dosage: DAILY
     Route: 048
     Dates: start: 20090811
  12. HALDOL [Concomitant]
     Indication: NAUSEA
     Dosage: EVERY 6 HOURS AS NEEDED
     Route: 048
     Dates: start: 20100202
  13. TAMSULOSIN HYDROCHLORIDE [Concomitant]
     Indication: URINARY INCONTINENCE
     Dosage: 0.4 MG, 1X/DAY
     Route: 048
     Dates: start: 20090301
  14. LISINOPRIL AND HYDROCHLOROTHIAZIDE [Concomitant]
     Indication: HYPERTENSION
     Dosage: 10/12.5 MG, DAILY
     Route: 048
     Dates: start: 20070101
  15. PROTONIX [Concomitant]
     Indication: PROPHYLAXIS
     Dosage: 40 MG, 1X/DAY
     Route: 048
     Dates: start: 20090811

REACTIONS (3)
  - INFECTION [None]
  - SYNCOPE [None]
  - DEHYDRATION [None]
